FAERS Safety Report 13182965 (Version 2)
Quarter: 2017Q1

REPORT INFORMATION
  Report Type: Spontaneous
  Country: IT (occurrence: IT)
  Receive Date: 20170203
  Receipt Date: 20170215
  Transmission Date: 20170428
  Serious: Yes (Hospitalization)
  Sender: FDA-Public Use
  Company Number: IT-PFIZER INC-2017044055

PATIENT
  Age: 72 Year
  Sex: Female

DRUGS (2)
  1. CORIPREN [Concomitant]
     Active Substance: ENALAPRIL MALEATE\LERCANIDIPINE HYDROCHLORIDE
     Indication: HYPERTENSION
     Dosage: UNK
  2. CARDURA [Suspect]
     Active Substance: DOXAZOSIN MESYLATE
     Indication: HYPERTENSION
     Dosage: 4 MG, DAILY
     Route: 048
     Dates: start: 20170125, end: 20170126

REACTIONS (4)
  - Flushing [Recovered/Resolved]
  - Hypertensive crisis [Recovered/Resolved]
  - Dry mouth [Recovered/Resolved]
  - Throat tightness [Recovered/Resolved]

NARRATIVE: CASE EVENT DATE: 20170125
